FAERS Safety Report 5767449-6 (Version None)
Quarter: 2008Q2

REPORT INFORMATION
  Report Type: 
  Country: None (occurrence: None)
  Receive Date: 20080612
  Receipt Date: 20080610
  Transmission Date: 20081010
  Serious: Yes (Death, Other)
  Sender: FDA-Public Use
  Company Number: DE-AVENTIS-200811554DE

PATIENT
  Age: 71 Year
  Sex: Male

DRUGS (1)
  1. TAXOTERE [Suspect]
     Route: 041
     Dates: start: 20080101, end: 20080501

REACTIONS (2)
  - LEUKOCYTOSIS [None]
  - PULMONARY EMBOLISM [None]
